FAERS Safety Report 9940305 (Version 1)
Quarter: 2014Q1

REPORT INFORMATION
  Report Type: Report from Study
  Country: US (occurrence: US)
  Receive Date: 20140303
  Receipt Date: 20140303
  Transmission Date: 20141002
  Serious: No
  Sender: FDA-Public Use
  Company Number: US-ABBVIE-13P-163-1036181-00

PATIENT
  Sex: Female
  Weight: 87.17 kg

DRUGS (5)
  1. HUMIRA [Suspect]
     Indication: PSORIASIS
     Dates: start: 201206
  2. BLOOD PRESSURE PILL [Concomitant]
     Indication: HYPERTENSION
  3. METFORMIN [Concomitant]
     Indication: DIABETES MELLITUS
  4. FOSAMAX [Concomitant]
     Indication: OSTEOPOROSIS
  5. CALCIUM + VITAMIN D [Concomitant]
     Indication: OSTEOPOROSIS

REACTIONS (3)
  - Incorrect dose administered [Unknown]
  - Psoriasis [Not Recovered/Not Resolved]
  - Injection site pain [Not Recovered/Not Resolved]
